FAERS Safety Report 25322674 (Version 1)
Quarter: 2025Q2

REPORT INFORMATION
  Report Type: Spontaneous
  Country: US (occurrence: US)
  Receive Date: 20250516
  Receipt Date: 20250516
  Transmission Date: 20250716
  Serious: Yes (Hospitalization)
  Sender: STRIDES
  Company Number: US-STRIDES PHARMA UK LTD.-2024SP014148

PATIENT

DRUGS (12)
  1. VANCOMYCIN [Suspect]
     Active Substance: VANCOMYCIN
     Indication: Device related infection
     Route: 014
  2. VANCOMYCIN [Suspect]
     Active Substance: VANCOMYCIN
     Indication: Arthritis infective
     Route: 014
  3. VANCOMYCIN [Suspect]
     Active Substance: VANCOMYCIN
     Route: 014
  4. VANCOMYCIN [Suspect]
     Active Substance: VANCOMYCIN
     Route: 048
  5. NAFCILLIN [Suspect]
     Active Substance: NAFCILLIN SODIUM
     Indication: Device related infection
     Route: 065
  6. NAFCILLIN [Suspect]
     Active Substance: NAFCILLIN SODIUM
     Indication: Arthritis infective
  7. CEFAZOLIN [Suspect]
     Active Substance: CEFAZOLIN
     Indication: Device related infection
     Route: 042
  8. CEFAZOLIN [Suspect]
     Active Substance: CEFAZOLIN
     Indication: Arthritis infective
     Route: 042
  9. TOBRAMYCIN [Suspect]
     Active Substance: TOBRAMYCIN
     Indication: Device related infection
     Route: 014
  10. TOBRAMYCIN [Suspect]
     Active Substance: TOBRAMYCIN
     Indication: Arthritis infective
     Route: 014
  11. GENTAMICIN [Suspect]
     Active Substance: GENTAMICIN
     Indication: Device related infection
     Route: 014
  12. GENTAMICIN [Suspect]
     Active Substance: GENTAMICIN
     Indication: Arthritis infective

REACTIONS (2)
  - Acute kidney injury [Recovered/Resolved]
  - Off label use [Unknown]
